FAERS Safety Report 5915464-1 (Version None)
Quarter: 2008Q3

REPORT INFORMATION
  Report Type: 
  Country: None (occurrence: None)
  Receive Date: 20080909
  Receipt Date: 20071203
  Transmission Date: 20090109
  Serious: Yes (Hospitalization, Other)
  Sender: FDA-Public Use
  Company Number: 163-20785-07091189

PATIENT
  Age: 79 Year
  Sex: Female
  Weight: 70.7611 kg

DRUGS (38)
  1. THALOMID [Suspect]
     Indication: MULTIPLE MYELOMA
     Dosage: 50 MG, 1 IN 1 D, ORAL ; 40 MG, AT BEDTIME, ORAL
     Route: 048
     Dates: start: 20070514, end: 20071005
  2. DEXAMETHASONE TAB [Concomitant]
  3. OXYGEN (OXYGEN) [Concomitant]
  4. AMIODARONE HCL [Concomitant]
  5. LOPRESSOR [Concomitant]
  6. EPOGEN [Concomitant]
  7. COZAAR [Concomitant]
  8. ALLOPURINOL [Concomitant]
  9. IMDUR [Concomitant]
  10. PROTONIX [Concomitant]
  11. ZETIA [Concomitant]
  12. LUMIGAN [Concomitant]
  13. LASIX [Concomitant]
  14. TAPAZOLE [Concomitant]
  15. WARFARIN SODIUM [Concomitant]
  16. PAMIDRONATE DISODIUM [Concomitant]
  17. LOVASTATIN [Concomitant]
  18. HYTRIN [Concomitant]
  19. PERCOCET [Concomitant]
  20. ACETAMINOPHEN [Concomitant]
  21. MULTIVITAMIN [Concomitant]
  22. MIRALAX (MACRAGOL) [Concomitant]
  23. FLUTAMIDE [Concomitant]
  24. COUMADIN [Concomitant]
  25. NEXIUM [Concomitant]
  26. METHIMAZOLE [Concomitant]
  27. VANTIN [Concomitant]
  28. LEVAQUIN [Concomitant]
  29. POTASSIUM CHLORIDE [Concomitant]
  30. LOSARTEN [Concomitant]
  31. FUROSEMIDE [Concomitant]
  32. TUMS (CALCIUM CARBONATE) [Concomitant]
  33. KLONADINE [Concomitant]
  34. NORVASC [Concomitant]
  35. AMNIOTORONE [Concomitant]
  36. ZOFRAN [Concomitant]
  37. NTG (GLYCERYL TRINITRATE) [Concomitant]
  38. PACKED BLOOD CELLS [Concomitant]

REACTIONS (13)
  - ANAEMIA [None]
  - ATRIAL FIBRILLATION [None]
  - BRADYCARDIA [None]
  - CARDIAC FAILURE CONGESTIVE [None]
  - DYSPNOEA [None]
  - EMPHYSEMATOUS CYSTITIS [None]
  - FATIGUE [None]
  - NEUTROPENIA [None]
  - PAIN [None]
  - PLATELET COUNT DECREASED [None]
  - PNEUMONIA [None]
  - PYURIA [None]
  - RASH [None]
